FAERS Safety Report 24047796 (Version 1)
Quarter: 2024Q3

REPORT INFORMATION
  Report Type: Spontaneous
  Country: US (occurrence: US)
  Receive Date: 20240703
  Receipt Date: 20240703
  Transmission Date: 20241017
  Serious: No
  Sender: PFIZER
  Company Number: US-SEATTLE GENETICS-2024SGN04146

PATIENT
  Sex: Female

DRUGS (1)
  1. TIVDAK [Suspect]
     Active Substance: TISOTUMAB VEDOTIN-TFTV
     Indication: Product used for unknown indication
     Dosage: 1 UNK
     Route: 065

REACTIONS (2)
  - Alopecia [Recovering/Resolving]
  - Nausea [Recovering/Resolving]
